FAERS Safety Report 5407156-2 (Version None)
Quarter: 2007Q3

REPORT INFORMATION
  Report Type: 
  Country: None (occurrence: None)
  Receive Date: 20070803
  Receipt Date: 20070803
  Transmission Date: 20080115
  Serious: No
  Sender: FDA-Public Use
  Company Number: None

PATIENT
  Sex: Female
  Weight: 98.77 kg

DRUGS (2)
  1. CYCLOPHOSPHAMIDE [Suspect]
     Dosage: 1230 MG
  2. DOXORUBICIN HYDROCHLORIDE [Suspect]
     Dosage: 123 MG

REACTIONS (5)
  - BODY TEMPERATURE INCREASED [None]
  - DYSPHAGIA [None]
  - MALAISE [None]
  - NEUTROPHIL COUNT DECREASED [None]
  - SENSATION OF FOREIGN BODY [None]
